FAERS Safety Report 25633574 (Version 1)
Quarter: 2025Q3

REPORT INFORMATION
  Report Type: Spontaneous
  Country: CN (occurrence: CN)
  Receive Date: 20250801
  Receipt Date: 20250801
  Transmission Date: 20251020
  Serious: Yes (Other)
  Sender: PFIZER
  Company Number: CN-PFIZER INC-PV202500092269

PATIENT
  Age: 73 Year
  Sex: Male
  Weight: 40 kg

DRUGS (1)
  1. TIGECYCLINE [Suspect]
     Active Substance: TIGECYCLINE
     Indication: Sepsis
     Dosage: 50 MG, 2X/DAY
     Route: 041
     Dates: start: 20250724

REACTIONS (5)
  - Platelet count decreased [Recovering/Resolving]
  - Coagulation time prolonged [Recovering/Resolving]
  - Coagulopathy [Recovering/Resolving]
  - Extravasation blood [Unknown]
  - Condition aggravated [Unknown]

NARRATIVE: CASE EVENT DATE: 20250727
